FAERS Safety Report 14698790 (Version 1)
Quarter: 2018Q1

REPORT INFORMATION
  Report Type: Spontaneous
  Country: JP (occurrence: JP)
  Receive Date: 20180330
  Receipt Date: 20180330
  Transmission Date: 20180509
  Serious: Yes (Hospitalization)
  Sender: FDA-Public Use
  Company Number: JP-SA-2018SA092172

PATIENT
  Sex: Male

DRUGS (3)
  1. LANTUS XR [Suspect]
     Active Substance: INSULIN GLARGINE
     Route: 058
     Dates: start: 201802
  2. SOLOSTAR [Suspect]
     Active Substance: DEVICE
     Dates: start: 201802
  3. LANTUS XR [Suspect]
     Active Substance: INSULIN GLARGINE
     Route: 058
     Dates: start: 2018

REACTIONS (2)
  - Blood glucose increased [Unknown]
  - Hospitalisation [Unknown]

NARRATIVE: CASE EVENT DATE: 2018
